FAERS Safety Report 8482074-4 (Version None)
Quarter: 2012Q3

REPORT INFORMATION
  Report Type: 
  Country: None (occurrence: None)
  Receive Date: 20120702
  Receipt Date: 20120629
  Transmission Date: 20120928
  Serious: Yes (Other)
  Sender: FDA-Public Use
  Company Number: US-PFIZER INC-2012019369

PATIENT
  Sex: Female
  Weight: 56.689 kg

DRUGS (6)
  1. PROGRAF [Concomitant]
     Indication: RENAL TRANSPLANT
     Dosage: 1 MG, DAILY
     Route: 048
  2. RAPAMUNE [Suspect]
     Indication: PROPHYLAXIS AGAINST TRANSPLANT REJECTION
     Dosage: 1 MG, DAILY
     Route: 048
     Dates: start: 20110729
  3. RAPAMUNE [Suspect]
     Indication: RENAL TRANSPLANT
  4. PREDNISONE [Concomitant]
     Indication: RENAL TRANSPLANT
     Dosage: 5 MG, DAILY
     Route: 048
  5. METOPROLOL TARTRATE [Concomitant]
     Indication: BLOOD PRESSURE ABNORMAL
     Dosage: 25 MG, 2X/DAY
     Route: 048
  6. ENALAPRIL MALEATE [Concomitant]
     Indication: BLOOD PRESSURE ABNORMAL
     Dosage: 10 MG, 2X/DAY
     Route: 048

REACTIONS (2)
  - PULMONARY HYPERTENSION [None]
  - NASOPHARYNGITIS [None]
